FAERS Safety Report 10485303 (Version 2)
Quarter: 2014Q4

REPORT INFORMATION
  Report Type: Spontaneous
  Country: JP (occurrence: JP)
  Receive Date: 20140930
  Receipt Date: 20141010
  Transmission Date: 20150528
  Serious: Yes (Other)
  Sender: FDA-Public Use
  Company Number: PHHY2014JP126885

PATIENT
  Age: 58 Year
  Sex: Female
  Weight: 37.6 kg

DRUGS (8)
  1. ETHAMBUTOL [Suspect]
     Active Substance: ETHAMBUTOL HYDROCHLORIDE
     Indication: CHEMOTHERAPY
     Route: 065
     Dates: start: 201012
  2. PREDNISOLONE. [Suspect]
     Active Substance: PREDNISOLONE
     Indication: PRODUCT USED FOR UNKNOWN INDICATION
     Dosage: 30 MG, PER DAY
     Route: 065
  3. PREDNISOLONE. [Suspect]
     Active Substance: PREDNISOLONE
     Dosage: 5 MG, QMO
     Route: 065
     Dates: end: 201106
  4. RIFAMPICIN [Suspect]
     Active Substance: RIFAMPIN
     Dosage: 450 MG, PER DAY
     Route: 065
  5. ETHAMBUTOL [Suspect]
     Active Substance: ETHAMBUTOL HYDROCHLORIDE
     Dosage: 750 MG, PER DAY
     Route: 065
  6. RIFAMPICIN [Suspect]
     Active Substance: RIFAMPIN
     Indication: CHEMOTHERAPY
     Route: 065
     Dates: start: 201012
  7. CLARITHROMYCIN. [Suspect]
     Active Substance: CLARITHROMYCIN
     Indication: CHEMOTHERAPY
     Route: 065
     Dates: start: 201012
  8. CLARITHROMYCIN. [Suspect]
     Active Substance: CLARITHROMYCIN
     Dosage: 800 MG, PER DAY
     Route: 065

REACTIONS (2)
  - Hepatic function abnormal [Unknown]
  - Erythema multiforme [Unknown]
